FAERS Safety Report 11682966 (Version 2)
Quarter: 2015Q4

REPORT INFORMATION
  Report Type: Spontaneous
  Country: US (occurrence: US)
  Receive Date: 20151029
  Receipt Date: 20151218
  Transmission Date: 20160304
  Serious: Yes (Hospitalization)
  Sender: FDA-Public Use
  Company Number: US-FRESENIUS KABI-FK201505477

PATIENT
  Age: 19 Year
  Sex: Male
  Weight: 60.7 kg

DRUGS (14)
  1. CRIZOTINIB [Suspect]
     Active Substance: CRIZOTINIB
     Indication: ANAPLASTIC LARGE CELL LYMPHOMA T- AND NULL-CELL TYPES
     Route: 048
     Dates: start: 20140503
  2. DEXAMETHASONE. [Suspect]
     Active Substance: DEXAMETHASONE
     Indication: ANAPLASTIC LARGE CELL LYMPHOMA T- AND NULL-CELL TYPES
     Route: 048
     Dates: start: 20140428
  3. HYDROCORTISONE. [Concomitant]
     Active Substance: HYDROCORTISONE
     Indication: ANAPLASTIC LARGE CELL LYMPHOMA T- AND NULL-CELL TYPES
     Route: 037
  4. DEXAMETHASONE. [Suspect]
     Active Substance: DEXAMETHASONE
     Route: 048
  5. LEUCOVORIN. [Suspect]
     Active Substance: LEUCOVORIN
     Indication: ANAPLASTIC LARGE CELL LYMPHOMA T- AND NULL-CELL TYPES
     Dates: start: 20140504, end: 20140826
  6. CYTARABINE. [Concomitant]
     Active Substance: CYTARABINE
     Route: 037
  7. IFOSFAMIDE. [Concomitant]
     Active Substance: IFOSFAMIDE
     Indication: ANAPLASTIC LARGE CELL LYMPHOMA T- AND NULL-CELL TYPES
     Route: 042
  8. METHOTREXATE (MANUFACTURER UNKNOWN) [Suspect]
     Active Substance: METHOTREXATE
     Route: 042
     Dates: start: 20140503
  9. DOXORUBICIN HCL [Suspect]
     Active Substance: DOXORUBICIN HYDROCHLORIDE
     Indication: ANAPLASTIC LARGE CELL LYMPHOMA T- AND NULL-CELL TYPES
     Route: 042
     Dates: start: 20140527
  10. CYCLOPHOSPHAMIDE. [Suspect]
     Active Substance: CYCLOPHOSPHAMIDE
     Indication: ANAPLASTIC LARGE CELL LYMPHOMA T- AND NULL-CELL TYPES
     Route: 042
     Dates: start: 20140428
  11. ETOPOSIDE. [Concomitant]
     Active Substance: ETOPOSIDE
     Indication: ANAPLASTIC LARGE CELL LYMPHOMA T- AND NULL-CELL TYPES
     Route: 042
  12. CYTARABINE. [Concomitant]
     Active Substance: CYTARABINE
     Indication: ANAPLASTIC LARGE CELL LYMPHOMA T- AND NULL-CELL TYPES
     Route: 042
  13. METHOTREXATE (MANUFACTURER UNKNOWN) [Suspect]
     Active Substance: METHOTREXATE
     Indication: ANAPLASTIC LARGE CELL LYMPHOMA T- AND NULL-CELL TYPES
     Route: 037
     Dates: start: 20140430, end: 20140430
  14. CYCLOPHOSPHAMIDE. [Suspect]
     Active Substance: CYCLOPHOSPHAMIDE
     Route: 042

REACTIONS (2)
  - Stomatitis [Recovered/Resolved]
  - Tracheal inflammation [Recovered/Resolved]

NARRATIVE: CASE EVENT DATE: 20140716
